FAERS Safety Report 8173469-7 (Version None)
Quarter: 2012Q1

REPORT INFORMATION
  Report Type: 
  Country: None (occurrence: None)
  Receive Date: 20120223
  Receipt Date: 20120207
  Transmission Date: 20120608
  Serious: Yes (Other)
  Sender: FDA-Public Use
  Company Number: 2012SP006806

PATIENT
  Sex: Female

DRUGS (2)
  1. PHYSIOSTAT (LYNESTRENOL/ETHINYLESTRADIOL /00147701/) [Suspect]
     Indication: PRODUCT USED FOR UNKNOWN INDICATION
  2. OVANON (LYNESTRENOL/ETHINYLESTRADOL /00147701/) [Suspect]
     Indication: PRODUCT USED FOR UNKNOWN INDICATION
     Dosage: PO
     Route: 048

REACTIONS (1)
  - ECTOPIC PREGNANCY [None]
